FAERS Safety Report 8995781 (Version 1)
Quarter: 2013Q1

REPORT INFORMATION
  Report Type: Spontaneous
  Country: US (occurrence: US)
  Receive Date: 20130103
  Receipt Date: 20130103
  Transmission Date: 20140127
  Serious: No
  Sender: FDA-Public Use
  Company Number: US-ABBOTT-12P-163-0904844-00

PATIENT
  Sex: Female
  Weight: 63.11 kg

DRUGS (8)
  1. SYNTHROID [Suspect]
     Indication: HYPOTHYROIDISM
     Dates: start: 20120110
  2. SYNTHROID [Suspect]
     Dates: end: 20120109
  3. CYTOMEL [Concomitant]
     Indication: THYROID DISORDER
  4. CYMBALTA [Concomitant]
     Indication: DEPRESSION
  5. LOVAZA [Concomitant]
     Indication: BLOOD TRIGLYCERIDES
  6. LOPID [Concomitant]
     Indication: BLOOD TRIGLYCERIDES
  7. ESTROGEN/TESTOSTERONE  PELLETS [Concomitant]
     Indication: MENOPAUSE
  8. PROGESTERONE [Concomitant]
     Indication: MENOPAUSE

REACTIONS (3)
  - Drug effect decreased [Not Recovered/Not Resolved]
  - Fatigue [Not Recovered/Not Resolved]
  - Fatigue [Not Recovered/Not Resolved]
